FAERS Safety Report 20770026 (Version 1)
Quarter: 2022Q2

REPORT INFORMATION
  Report Type: Other
  Country: US (occurrence: None)
  Receive Date: 20220429
  Receipt Date: 20220429
  Transmission Date: 20220720
  Serious: Yes (Other)
  Sender: FDA-Public Use
  Company Number: US-ROCHE-3086312

PATIENT
  Sex: Male
  Weight: 77.180 kg

DRUGS (11)
  1. OCREVUS [Suspect]
     Active Substance: OCRELIZUMAB
     Indication: Relapsing-remitting multiple sclerosis
     Route: 042
  2. TECFIDERA [Concomitant]
     Active Substance: DIMETHYL FUMARATE
  3. ASPIRIN [Concomitant]
     Active Substance: ASPIRIN
  4. BACLOFEN [Concomitant]
     Active Substance: BACLOFEN
  5. DOCUSATE SODIUM [Concomitant]
     Active Substance: DOCUSATE SODIUM
  6. INDAPAMIDE [Concomitant]
     Active Substance: INDAPAMIDE
  7. INTERFERON BETA-1B [Concomitant]
     Active Substance: INTERFERON BETA-1B
  8. METOPROLOL [Concomitant]
     Active Substance: METOPROLOL
  9. MIRTAZAPINE [Concomitant]
     Active Substance: MIRTAZAPINE
  10. PRAVASTATIN [Concomitant]
     Active Substance: PRAVASTATIN
  11. SPIRONOLACTONE [Concomitant]
     Active Substance: SPIRONOLACTONE

REACTIONS (18)
  - Progressive multiple sclerosis [Unknown]
  - Hemiparesis [Unknown]
  - Ataxia [Unknown]
  - Gait disturbance [Unknown]
  - Dementia [Unknown]
  - Muscular weakness [Unknown]
  - COVID-19 [Unknown]
  - Fatigue [Unknown]
  - Vision blurred [Unknown]
  - Dyspnoea [Unknown]
  - Pollakiuria [Unknown]
  - Myalgia [Unknown]
  - Coordination abnormal [Unknown]
  - Gait disturbance [Unknown]
  - Fall [Unknown]
  - Sleep apnoea syndrome [Unknown]
  - Disturbance in attention [Unknown]
  - Polyuria [Unknown]
